FAERS Safety Report 19718351 (Version 1)
Quarter: 2021Q3

REPORT INFORMATION
  Report Type: Spontaneous
  Country: US (occurrence: US)
  Receive Date: 20210818
  Receipt Date: 20210818
  Transmission Date: 20211014
  Serious: No
  Sender: FDA-Public Use
  Company Number: None

PATIENT
  Age: 36 Year
  Sex: Female
  Weight: 85.5 kg

DRUGS (3)
  1. PROPRANOLOL 60MG TABLET [Concomitant]
  2. GADAVIST [Suspect]
     Active Substance: GADOBUTROL
     Indication: X-RAY WITH CONTRAST
     Dosage: ?          OTHER FREQUENCY:ONCE;?
     Route: 042
     Dates: start: 20210812, end: 20210812
  3. MICROGESTIN?24 FE TABLET [Concomitant]

REACTIONS (3)
  - Paraesthesia [None]
  - Dizziness [None]
  - Anxiety [None]

NARRATIVE: CASE EVENT DATE: 20210812
